FAERS Safety Report 22888924 (Version 2)
Quarter: 2023Q4

REPORT INFORMATION
  Report Type: Report from Study
  Country: CL (occurrence: CL)
  Receive Date: 20230831
  Receipt Date: 20231105
  Transmission Date: 20240110
  Serious: Yes (Life-Threatening, Other)
  Sender: FDA-Public Use
  Company Number: CL-002147023-NVSC2023CL081130

PATIENT
  Age: 31 Year
  Sex: Female

DRUGS (2)
  1. COSENTYX [Suspect]
     Active Substance: SECUKINUMAB
     Indication: Psoriatic arthropathy
     Dosage: 150 MG, EVERY 3 MONTHS
     Route: 058
     Dates: start: 202004, end: 202111
  2. METHOTREXATE [Suspect]
     Active Substance: METHOTREXATE
     Indication: Product used for unknown indication
     Dosage: UNK
     Route: 065

REACTIONS (16)
  - Gastrointestinal haemorrhage [Unknown]
  - Drug hypersensitivity [Unknown]
  - Malaise [Unknown]
  - Head injury [Unknown]
  - Psoriasis [Unknown]
  - Limb injury [Unknown]
  - Joint injury [Unknown]
  - Inflammation [Unknown]
  - Finger deformity [Unknown]
  - Pain [Unknown]
  - Abdominal pain upper [Unknown]
  - Cough [Unknown]
  - Nasopharyngitis [Unknown]
  - Sneezing [Unknown]
  - Feeling abnormal [Unknown]
  - Off label use [Unknown]
